FAERS Safety Report 20544214 (Version 1)
Quarter: 2022Q1

REPORT INFORMATION
  Report Type: Report from Study
  Country: US (occurrence: US)
  Receive Date: 20220303
  Receipt Date: 20220303
  Transmission Date: 20220423
  Serious: Yes (Hospitalization)
  Sender: FDA-Public Use
  Company Number: US-BIOGEN-2022BI01100552

PATIENT
  Sex: Female

DRUGS (1)
  1. SPINRAZA [Suspect]
     Active Substance: NUSINERSEN
     Indication: Spinal muscular atrophy
     Route: 065
     Dates: start: 20180129, end: 20210315

REACTIONS (6)
  - Sepsis [Unknown]
  - Coma [Unknown]
  - Pulmonary hypertension [Unknown]
  - Hypotension [Unknown]
  - Dyspnoea [Unknown]
  - Fatigue [Unknown]
